FAERS Safety Report 6643748-0 (Version None)
Quarter: 2010Q1

REPORT INFORMATION
  Report Type: 
  Country: None (occurrence: None)
  Receive Date: 20100322
  Receipt Date: 20100312
  Transmission Date: 20100710
  Serious: Yes (Hospitalization)
  Sender: FDA-Public Use
  Company Number: US-BIOGENIDEC-2010BI008788

PATIENT
  Age: 64 Year
  Sex: Female

DRUGS (4)
  1. AVONEX [Suspect]
     Indication: MULTIPLE SCLEROSIS
     Route: 030
     Dates: start: 20070101
  2. AVONEX [Suspect]
     Route: 030
     Dates: start: 20070101
  3. AVONEX [Suspect]
     Route: 030
     Dates: start: 20070101
  4. AVONEX [Suspect]
     Route: 030

REACTIONS (3)
  - MULTIPLE SCLEROSIS RELAPSE [None]
  - RECTAL PROLAPSE [None]
  - UPPER LIMB FRACTURE [None]
